FAERS Safety Report 5442936-9 (Version None)
Quarter: 2007Q3

REPORT INFORMATION
  Report Type: 
  Country: None (occurrence: None)
  Receive Date: 20070830
  Receipt Date: 20070816
  Transmission Date: 20080115
  Serious: Yes (Hospitalization)
  Sender: FDA-Public Use
  Company Number: MPS1-10734

PATIENT
  Age: 6 Year
  Sex: Female
  Weight: 16.6 kg

DRUGS (3)
  1. ALDURAZYME [Suspect]
     Indication: MUCOPOLYSACCHARIDOSIS I
     Dates: start: 20030407
  2. ERYTHROMYCIN [Concomitant]
  3. FLUTICASONE PROPIONATE [Concomitant]

REACTIONS (3)
  - HYDROCEPHALUS [None]
  - INTRACRANIAL PRESSURE INCREASED [None]
  - VISUAL ACUITY REDUCED [None]
